FAERS Safety Report 7311872-5 (Version None)
Quarter: 2011Q1

REPORT INFORMATION
  Report Type: 
  Country: None (occurrence: None)
  Receive Date: 20110224
  Receipt Date: 20110114
  Transmission Date: 20110831
  Serious: Yes (Death, Other)
  Sender: FDA-Public Use
  Company Number: US-BAXTER-2010BH002626

PATIENT
  Age: 72 Year
  Sex: Female
  Weight: 45 kg

DRUGS (28)
  1. HEPARIN SODIUM 5,000 UNITS IN DEXTROSE 5% [Suspect]
     Indication: PRODUCT USED FOR UNKNOWN INDICATION
     Route: 042
     Dates: start: 20071107
  2. ATENOLOL [Concomitant]
     Indication: PRODUCT USED FOR UNKNOWN INDICATION
     Route: 048
  3. EPOETIN ALFA [Concomitant]
     Indication: DIALYSIS
     Route: 065
  4. HEPARIN SODIUM INJECTION [Suspect]
     Route: 040
     Dates: start: 20071210, end: 20071223
  5. ESOMEPRAZOLE [Concomitant]
     Indication: PRODUCT USED FOR UNKNOWN INDICATION
     Route: 048
  6. HEPARIN SODIUM INJECTION [Suspect]
     Route: 042
     Dates: start: 20070903, end: 20071031
  7. HEPARIN SODIUM INJECTION [Suspect]
     Route: 058
     Dates: start: 20071107, end: 20071107
  8. HEPARIN SODIUM INJECTION [Suspect]
     Indication: HAEMODIALYSIS
     Route: 040
     Dates: start: 20070903, end: 20071031
  9. CENTRUM SILVER [Concomitant]
     Indication: PRODUCT USED FOR UNKNOWN INDICATION
     Route: 048
  10. COLESTIPOL HYDROCHLORIDE [Concomitant]
     Indication: PRODUCT USED FOR UNKNOWN INDICATION
     Route: 065
  11. CYPROHEPTADINE HCL [Concomitant]
     Indication: PRODUCT USED FOR UNKNOWN INDICATION
     Route: 048
  12. LEVOPHED [Concomitant]
     Indication: HYPOTENSION
     Route: 065
  13. HEPARIN SODIUM INJECTION [Suspect]
     Route: 058
     Dates: start: 20071106, end: 20071106
  14. RENAGEL [Concomitant]
     Indication: PRODUCT USED FOR UNKNOWN INDICATION
     Route: 065
  15. CALCIUM CARBONATE [Concomitant]
     Indication: PRODUCT USED FOR UNKNOWN INDICATION
     Route: 048
  16. METRONIDAZOLE [Concomitant]
     Indication: PRODUCT USED FOR UNKNOWN INDICATION
     Route: 065
  17. NORMAL SALINE [Concomitant]
     Indication: HYPOTENSION
     Route: 042
  18. NARCAN [Concomitant]
     Indication: PRODUCT USED FOR UNKNOWN INDICATION
     Route: 065
     Dates: start: 20071225, end: 20071225
  19. HEPARIN SODIUM INJECTION [Suspect]
     Route: 042
     Dates: start: 20071210, end: 20071223
  20. PERCOCET [Concomitant]
     Indication: PAIN
     Route: 048
  21. CHOLESTYRAMINE [Concomitant]
     Indication: PRODUCT USED FOR UNKNOWN INDICATION
     Route: 048
  22. VANCOMYCIN [Concomitant]
     Indication: CLOSTRIDIUM DIFFICILE COLITIS
     Route: 048
  23. POTASSIUM [Concomitant]
     Indication: ELECTROLYTE SUBSTITUTION THERAPY
     Route: 042
  24. WARFARIN [Concomitant]
     Indication: DEEP VEIN THROMBOSIS
     Route: 065
  25. HEPARIN SODIUM INJECTION [Suspect]
     Route: 058
     Dates: start: 20071106, end: 20071106
  26. HEPARIN SODIUM INJECTION [Suspect]
     Route: 040
     Dates: start: 20071107, end: 20071107
  27. HEPARIN SODIUM INJECTION [Suspect]
     Route: 058
     Dates: start: 20071105, end: 20071105
  28. DIGOXIN [Concomitant]
     Indication: TACHYCARDIA
     Route: 065

REACTIONS (14)
  - VOMITING [None]
  - ASTHENIA [None]
  - RENAL FAILURE [None]
  - CLOSTRIDIUM DIFFICILE COLITIS [None]
  - JUGULAR VEIN THROMBOSIS [None]
  - NAUSEA [None]
  - CIRCULATORY COLLAPSE [None]
  - HYPOTENSION [None]
  - DECREASED APPETITE [None]
  - GASTRIC INFECTION [None]
  - ABDOMINAL PAIN [None]
  - ATRIAL FIBRILLATION [None]
  - SEPSIS [None]
  - FLANK PAIN [None]
